FAERS Safety Report 19933905 (Version 1)
Quarter: 2021Q4

REPORT INFORMATION
  Report Type: Spontaneous
  Country: CA (occurrence: CA)
  Receive Date: 20211008
  Receipt Date: 20211008
  Transmission Date: 20220303
  Serious: Yes (Hospitalization)
  Sender: FDA-Public Use
  Company Number: CA-TEVA-2021-CA-1961924

PATIENT
  Age: 86 Year
  Sex: Male

DRUGS (1)
  1. CARBAMAZEPINE [Suspect]
     Active Substance: CARBAMAZEPINE
     Route: 048

REACTIONS (5)
  - Asthenia [Recovering/Resolving]
  - Confusional state [Recovering/Resolving]
  - Gait disturbance [Recovering/Resolving]
  - Hyponatraemia [Recovering/Resolving]
  - Nystagmus [Recovering/Resolving]
